FAERS Safety Report 6794640-2 (Version None)
Quarter: 2010Q2

REPORT INFORMATION
  Report Type: 
  Country: None (occurrence: None)
  Receive Date: 20100625
  Receipt Date: 20100614
  Transmission Date: 20101027
  Serious: Yes (Hospitalization)
  Sender: FDA-Public Use
  Company Number: US-JNJFOC-20060101396

PATIENT
  Sex: Female
  Weight: 90.72 kg

DRUGS (10)
  1. REMICADE [Suspect]
     Indication: RHEUMATOID ARTHRITIS
     Route: 042
  2. REMICADE [Suspect]
     Route: 042
  3. REMICADE [Suspect]
     Route: 042
  4. REMICADE [Suspect]
     Indication: PSORIATIC ARTHROPATHY
     Route: 042
  5. REMICADE [Suspect]
     Route: 042
  6. REMICADE [Suspect]
     Route: 042
  7. METHOTREXATE SODIUM [Concomitant]
  8. ARAVA [Concomitant]
  9. DIURETIC [Concomitant]
  10. FOLIC ACID [Concomitant]

REACTIONS (9)
  - COUGH [None]
  - DIARRHOEA [None]
  - PNEUMONIA LEGIONELLA [None]
  - PSORIATIC ARTHROPATHY [None]
  - PYREXIA [None]
  - RENAL FAILURE ACUTE [None]
  - RHABDOMYOLYSIS [None]
  - THERAPEUTIC RESPONSE DECREASED [None]
  - TRANSFUSION [None]
